FAERS Safety Report 4346005-0 (Version None)
Quarter: 2004Q1

REPORT INFORMATION
  Report Type: 
  Country: None (occurrence: None)
  Receive Date: 20040325
  Receipt Date: 20040108
  Transmission Date: 20041129
  Serious: No
  Sender: FDA-Public Use
  Company Number: USA030538412

PATIENT
  Age: 83 Year
  Sex: Female
  Weight: 59 kg

DRUGS (5)
  1. FORTEO [Suspect]
     Indication: OSTEOPOROSIS
     Dosage: 20 UG/DAY
     Dates: start: 20030701
  2. PACERONE [Concomitant]
  3. COZAAR [Concomitant]
  4. ZANTAC [Concomitant]
  5. SYNTHROID [Concomitant]

REACTIONS (4)
  - ARTHRITIS [None]
  - BACK PAIN [None]
  - DYSKINESIA [None]
  - PAIN IN EXTREMITY [None]
